FAERS Safety Report 25585501 (Version 1)
Quarter: 2025Q3

REPORT INFORMATION
  Report Type: Spontaneous
  Country: US (occurrence: None)
  Receive Date: 20250718
  Receipt Date: 20250718
  Transmission Date: 20251020
  Serious: Yes (Life-Threatening, Hospitalization, Other)
  Sender: FDA-CTU
  Company Number: None

PATIENT

DRUGS (1)
  1. REMICADE [Suspect]
     Active Substance: INFLIXIMAB
     Route: 042
     Dates: start: 20250630

REACTIONS (11)
  - Dyspnoea [None]
  - Chest pain [None]
  - Infusion site pain [None]
  - Tremor [None]
  - Tremor [None]
  - Chills [None]
  - Seizure [None]
  - Dysphagia [None]
  - Heart rate increased [None]
  - Oxygen saturation decreased [None]
  - Malaise [None]

NARRATIVE: CASE EVENT DATE: 20250714
